FAERS Safety Report 12430428 (Version 1)
Quarter: 2016Q2

REPORT INFORMATION
  Report Type: Spontaneous
  Country: US (occurrence: US)
  Receive Date: 20160602
  Receipt Date: 20160602
  Transmission Date: 20160815
  Serious: No
  Sender: FDA-Public Use
  Company Number: US-TEVA-662511USA

PATIENT
  Sex: Female
  Weight: 53.12 kg

DRUGS (12)
  1. AMANTADINE [Concomitant]
     Active Substance: AMANTADINE
  2. BENAZEPRIL [Concomitant]
     Active Substance: BENAZEPRIL HYDROCHLORIDE
  3. OCUVITE [Concomitant]
     Active Substance: VITAMINS
  4. CLONIDINE. [Concomitant]
     Active Substance: CLONIDINE
  5. AZILECT [Suspect]
     Active Substance: RASAGILINE MESYLATE
     Indication: PARKINSON^S DISEASE
  6. BILBERRY EXTRACT [Concomitant]
  7. AMIODARONE [Concomitant]
     Active Substance: AMIODARONE
  8. ASPIRIN. [Concomitant]
     Active Substance: ASPIRIN
  9. DILTIAZEM [Concomitant]
     Active Substance: DILTIAZEM
  10. CARBIDOPA/LEVODOPA [Concomitant]
     Active Substance: CARBIDOPA\LEVODOPA
  11. LEFLUNOMIDE. [Concomitant]
     Active Substance: LEFLUNOMIDE
  12. METHOTREXATE [Concomitant]
     Active Substance: METHOTREXATE
     Indication: ARTHRITIS

REACTIONS (2)
  - Intentional product use issue [Unknown]
  - Hallucination [Not Recovered/Not Resolved]
